FAERS Safety Report 9169237 (Version 3)
Quarter: 2013Q2

REPORT INFORMATION
  Report Type: Spontaneous
  Country: US (occurrence: US)
  Receive Date: 20130318
  Receipt Date: 20130422
  Transmission Date: 20140414
  Serious: Yes (Hospitalization, Other)
  Sender: FDA-Public Use
  Company Number: US-PFIZER INC-2013086083

PATIENT
  Sex: Female

DRUGS (1)
  1. GEODON [Suspect]
     Dosage: UNK
     Dates: start: 20080101, end: 20130308

REACTIONS (3)
  - Mental disorder [Recovered/Resolved with Sequelae]
  - Fall [Recovered/Resolved with Sequelae]
  - Drug ineffective [Unknown]
